FAERS Safety Report 7239395-2 (Version None)
Quarter: 2011Q1

REPORT INFORMATION
  Report Type: 
  Country: None (occurrence: None)
  Receive Date: 20110121
  Receipt Date: 20110118
  Transmission Date: 20110831
  Serious: Yes (Other)
  Sender: FDA-Public Use
  Company Number: FR-PFIZER INC-2011011359

PATIENT
  Age: 46 Year
  Sex: Female

DRUGS (24)
  1. CICLOSPORIN [Suspect]
     Dosage: 70 MG, 2X/DAY
     Route: 048
     Dates: start: 20101209
  2. CLAMOXYL [Concomitant]
  3. SOLU-MEDROL [Suspect]
     Indication: STEM CELL TRANSPLANT
     Dosage: 200 MG, 1X/DAY
     Route: 042
     Dates: start: 20101129, end: 20101202
  4. ALLOPURINOL [Concomitant]
  5. CICLOSPORIN [Suspect]
     Indication: PROPHYLAXIS
     Dosage: 130 MG, 2X/DAY
     Route: 048
     Dates: start: 20101129, end: 20101201
  6. ZELITREX [Concomitant]
  7. ZOPHREN [Concomitant]
  8. CICLOSPORIN [Suspect]
     Dosage: 120 MG, 2X/DAY
     Route: 048
     Dates: start: 20101202, end: 20101202
  9. SERESTA [Concomitant]
  10. HEPARIN [Concomitant]
  11. PROZAC [Concomitant]
  12. CORTANCYL [Concomitant]
     Dosage: UNK
     Dates: end: 20101124
  13. CORTANCYL [Concomitant]
     Dosage: UNK
     Dates: start: 20101125
  14. CICLOSPORIN [Suspect]
     Dosage: 100 MG, 2X/DAY
     Route: 048
     Dates: start: 20101203, end: 20101205
  15. TRIFLUCAN [Concomitant]
  16. DELURSAN [Concomitant]
  17. RIVOTRIL [Concomitant]
  18. BACTRIM [Concomitant]
  19. BUSULFAN [Suspect]
     Indication: STEM CELL TRANSPLANT
     Dosage: 82 MG, 4X/DAY
     Route: 042
     Dates: start: 20101125, end: 20101128
  20. FLUDARA [Suspect]
     Indication: STEM CELL TRANSPLANT
     Dosage: 64 MG, 1X/DAY
     Route: 042
     Dates: start: 20101125, end: 20101128
  21. THYMOGLOBULIN [Suspect]
     Dosage: 166 MG, 1X/DAY
     Route: 042
     Dates: start: 20101129, end: 20101201
  22. NEXIUM [Concomitant]
  23. CICLOSPORIN [Suspect]
     Dosage: 80 MG, 2X/DAY
     Route: 048
     Dates: start: 20101206, end: 20101208
  24. ATENOLOL [Concomitant]

REACTIONS (3)
  - BLOOD LACTATE DEHYDROGENASE INCREASED [None]
  - PANCREATITIS ACUTE [None]
  - BLOOD BILIRUBIN INCREASED [None]
